FAERS Safety Report 9499333 (Version 1)
Quarter: 2013Q3

REPORT INFORMATION
  Report Type: Spontaneous
  Country: US (occurrence: US)
  Receive Date: 20130905
  Receipt Date: 20130905
  Transmission Date: 20140515
  Serious: No
  Sender: FDA-Public Use
  Company Number: US-BIOGENIDEC-2013BI083304

PATIENT
  Age: 50 Year
  Sex: Male

DRUGS (2)
  1. TYSABRI [Suspect]
     Indication: MULTIPLE SCLEROSIS
     Route: 042
     Dates: start: 20121026
  2. BACLOFEN [Concomitant]

REACTIONS (3)
  - Cognitive disorder [Recovered/Resolved]
  - Hypersomnia [Recovered/Resolved]
  - Depressed level of consciousness [Recovered/Resolved]
